FAERS Safety Report 5644028-2 (Version None)
Quarter: 2008Q1

REPORT INFORMATION
  Report Type: 
  Country: None (occurrence: None)
  Receive Date: 20080131
  Receipt Date: 20071116
  Transmission Date: 20080703
  Serious: Yes (Hospitalization)
  Sender: FDA-Public Use
  Company Number: 163-21880-07111000

PATIENT
  Age: 58 Year
  Sex: Female

DRUGS (2)
  1. REVLIMID [Suspect]
     Indication: MULTIPLE MYELOMA
     Dosage: 15, 10  MG, 3 WEEKS ON, ONE WEEK OFF, ORAL
     Route: 048
     Dates: start: 20070314, end: 20070501
  2. REVLIMID [Suspect]
     Indication: MULTIPLE MYELOMA
     Dosage: 15, 10  MG, 3 WEEKS ON, ONE WEEK OFF, ORAL
     Route: 048
     Dates: start: 20071116

REACTIONS (1)
  - THROMBOSIS [None]
